FAERS Safety Report 20470105 (Version 1)
Quarter: 2022Q1

REPORT INFORMATION
  Report Type: Spontaneous
  Country: PR (occurrence: PR)
  Receive Date: 20220214
  Receipt Date: 20220214
  Transmission Date: 20220424
  Serious: No
  Sender: FDA-Public Use
  Company Number: PR-PFIZER INC-202101596421

PATIENT
  Age: 60 Year
  Sex: Female

DRUGS (1)
  1. XELJANZ [Suspect]
     Active Substance: TOFACITINIB CITRATE
     Dosage: 30 MG, DAILY
     Dates: start: 20190107

REACTIONS (2)
  - Arthralgia [Not Recovered/Not Resolved]
  - Hypokinesia [Unknown]
